FAERS Safety Report 5591259-6 (Version None)
Quarter: 2008Q1

REPORT INFORMATION
  Report Type: 
  Country: None (occurrence: None)
  Receive Date: 20080115
  Receipt Date: 20080103
  Transmission Date: 20080703
  Serious: Yes (Death, Hospitalization)
  Sender: FDA-Public Use
  Company Number: US-BAYER-200712620BWH

PATIENT
  Age: 49 Year
  Sex: Male
  Weight: 105 kg

DRUGS (10)
  1. SORAFENIB [Suspect]
     Indication: GLIOBLASTOMA MULTIFORME
     Dosage: TOTAL DAILY DOSE: 800 MG  UNIT DOSE: 200 MG
     Route: 048
     Dates: start: 20070412, end: 20070425
  2. ERLOTINIB [Suspect]
     Indication: GLIOBLASTOMA MULTIFORME
     Route: 048
     Dates: start: 20070412, end: 20070425
  3. DECADRON [Concomitant]
  4. PROVIGIL [Concomitant]
  5. KEPPRA [Concomitant]
  6. K-DUR 10 [Concomitant]
  7. LASIX [Concomitant]
  8. ONDANSETRON [Concomitant]
  9. LOPERAMIDE HCL [Concomitant]
  10. QUININE [Concomitant]

REACTIONS (6)
  - DEEP VEIN THROMBOSIS [None]
  - DEHYDRATION [None]
  - DYSPNOEA [None]
  - LARGE INTESTINE PERFORATION [None]
  - SUDDEN DEATH [None]
  - WOUND DEHISCENCE [None]
